FAERS Safety Report 12944450 (Version 6)
Quarter: 2018Q2

REPORT INFORMATION
  Report Type: Report from Study
  Country: DE (occurrence: DE)
  Receive Date: 20161115
  Receipt Date: 20180605
  Transmission Date: 20180711
  Serious: Yes (Life-Threatening, Hospitalization, Other)
  Sender: FDA-Public Use
  Company Number: DE-INCYTE CORPORATION-2016IN006227

PATIENT

DRUGS (7)
  1. JAKAVI [Suspect]
     Active Substance: RUXOLITINIB
     Indication: PRIMARY MYELOFIBROSIS
     Dosage: 20 MG, BID
     Route: 048
     Dates: start: 20141002
  2. ALLOPURINOL. [Concomitant]
     Active Substance: ALLOPURINOL
     Indication: HYPERURICAEMIA
     Dosage: 150 MG, QD
     Route: 048
  3. CLOPIDOGREL [Concomitant]
     Active Substance: CLOPIDOGREL BISULFATE
     Indication: PRODUCT USED FOR UNKNOWN INDICATION
     Dosage: 75 MG, QD
     Route: 048
     Dates: start: 20160629
  4. DEKRISTOL [Concomitant]
     Active Substance: CHOLECALCIFEROL
     Indication: VITAMIN D DEFICIENCY
     Dosage: 20000 IU, QW
     Route: 048
  5. PANTOPRAZOLE [Concomitant]
     Active Substance: PANTOPRAZOLE
     Indication: GASTRIC DISORDER
     Dosage: 40 MG, QD
     Route: 065
  6. TAMSULOSIN [Concomitant]
     Active Substance: TAMSULOSIN
     Indication: BENIGN PROSTATIC HYPERPLASIA
     Dosage: 0.4 MG, QD
     Route: 065
  7. AMITRIPTYLIN [Concomitant]
     Active Substance: AMITRIPTYLINE
     Indication: DEPRESSION
     Dosage: 50 OT, QD
     Route: 065

REACTIONS (35)
  - Acute kidney injury [Recovered/Resolved]
  - Monocyte count increased [Unknown]
  - Hyperthermia [Unknown]
  - Polyneuropathy [Recovered/Resolved]
  - Pneumonia [Recovered/Resolved]
  - Splenomegaly [Unknown]
  - White blood cell count increased [Not Recovered/Not Resolved]
  - Clostridium bacteraemia [Recovered/Resolved]
  - Anaemia [Unknown]
  - Tachycardia [Unknown]
  - Gastrointestinal wall thickening [Unknown]
  - Pancreatic mass [Unknown]
  - Lymphadenopathy [Unknown]
  - Chest pain [Recovered/Resolved]
  - Portal vein thrombosis [Not Recovered/Not Resolved]
  - Hypokalaemia [Unknown]
  - C-reactive protein increased [Unknown]
  - Colon cancer [Recovered/Resolved]
  - Peritonitis [Recovered/Resolved]
  - Paraesthesia [Unknown]
  - Urinary tract infection [Recovered/Resolved]
  - Abnormal faeces [Unknown]
  - Pain in extremity [Recovered/Resolved]
  - Second primary malignancy [Unknown]
  - Sepsis [Recovered/Resolved]
  - Diverticulitis intestinal haemorrhagic [Recovered/Resolved]
  - Urinary tract infection [Recovered/Resolved]
  - Platelet count decreased [Not Recovered/Not Resolved]
  - Tachypnoea [Unknown]
  - Dysaesthesia [Unknown]
  - Haemoglobin decreased [Unknown]
  - Large intestine perforation [Recovered/Resolved]
  - Malnutrition [Unknown]
  - Abdominal pain [Unknown]
  - Pyrexia [Unknown]

NARRATIVE: CASE EVENT DATE: 20150127
